FAERS Safety Report 16958593 (Version 1)
Quarter: 2019Q4

REPORT INFORMATION
  Report Type: Spontaneous
  Country: US (occurrence: US)
  Receive Date: 20191024
  Receipt Date: 20191024
  Transmission Date: 20200122
  Serious: No
  Sender: FDA-Public Use
  Company Number: US-009507513-1910USA011517

PATIENT
  Age: 30 Year
  Sex: Female

DRUGS (7)
  1. DOXYCYCLINE HYCLATE. [Concomitant]
     Active Substance: DOXYCYCLINE HYCLATE
     Dosage: 100 MILLIGRAM, BID
     Route: 048
     Dates: start: 20190712
  2. MENOPUR [Concomitant]
     Active Substance: FOLLITROPIN\LUTEINIZING HORMONE
     Dosage: 150 INTERNATIONAL UNIT, DAILY
     Dates: start: 20190712, end: 20191011
  3. NOVAREL [Concomitant]
     Active Substance: CHORIOGONADOTROPIN ALFA
     Dosage: STRENGTH: 5000 UNITS, DOSE: 10000 UNITS
     Route: 030
     Dates: start: 20190712
  4. ESTRADIOL. [Concomitant]
     Active Substance: ESTRADIOL
     Dosage: 2 MILLIGRAM, BID
     Route: 067
     Dates: start: 20190805
  5. GANIRELIX ACETATE INJECTION [Suspect]
     Active Substance: GANIRELIX ACETATE
     Indication: INFERTILITY FEMALE
     Dosage: 250 MICROGRAM, DAILY
     Route: 058
     Dates: start: 20190712, end: 20191011
  6. GONAL-F [Suspect]
     Active Substance: FOLLITROPIN
     Dosage: 225 INTERNATIONAL UNIT, DAILY
     Route: 058
     Dates: start: 20190712, end: 20191011
  7. ENDOMETRIN [Concomitant]
     Active Substance: PROGESTERONE
     Dosage: 100 MILLIGRAM, TID
     Route: 067
     Dates: start: 20190805, end: 20190919

REACTIONS (1)
  - Adverse event [Unknown]

NARRATIVE: CASE EVENT DATE: 20190901
